FAERS Safety Report 9119209 (Version 2)
Quarter: 2013Q1

REPORT INFORMATION
  Report Type: Spontaneous
  Country: JP (occurrence: None)
  Receive Date: 20130130
  Receipt Date: 20130204
  Transmission Date: 20140127
  Serious: Yes (Other)
  Sender: FDA-Public Use
  Company Number: 2013SA000973

PATIENT
  Age: 67 Year
  Sex: Female

DRUGS (3)
  1. ARAVA [Suspect]
     Indication: RHEUMATOID ARTHRITIS
     Route: 048
     Dates: start: 2000, end: 20121228
  2. BARACLUDE [Suspect]
     Indication: HEPATITIS B
     Route: 048
  3. RHEUMATREX [Concomitant]

REACTIONS (4)
  - Liver disorder [None]
  - Aspartate aminotransferase increased [None]
  - Alanine aminotransferase increased [None]
  - Hepatitis B [None]
